FAERS Safety Report 13708649 (Version 10)
Quarter: 2020Q1

REPORT INFORMATION
  Report Type: Report from Study
  Country: US (occurrence: US)
  Receive Date: 20170630
  Receipt Date: 20200106
  Transmission Date: 20200409
  Serious: Yes (Hospitalization)
  Sender: FDA-Public Use
  Company Number: US-ACTELION-A-NJ2016-147274

PATIENT
  Age: 42 Year
  Sex: Female
  Weight: 85.71 kg

DRUGS (8)
  1. WARFARIN [Concomitant]
     Active Substance: WARFARIN
  2. VELETRI [Suspect]
     Active Substance: EPOPROSTENOL
     Indication: PULMONARY ARTERIAL HYPERTENSION
     Dosage: 48 NG/KG, PER MIN
     Route: 042
  3. VELETRI [Suspect]
     Active Substance: EPOPROSTENOL
     Dosage: 29 NG/KG, PER MIN
     Route: 042
     Dates: start: 20150206
  4. VELETRI [Suspect]
     Active Substance: EPOPROSTENOL
     Dosage: UNK
     Route: 042
  5. OPSUMIT [Suspect]
     Active Substance: MACITENTAN
     Indication: PULMONARY ARTERIAL HYPERTENSION
     Dosage: 10 MG, QD
     Route: 048
     Dates: start: 20140424
  6. OPSUMIT [Suspect]
     Active Substance: MACITENTAN
     Dosage: 10 UNK
     Route: 048
  7. VELETRI [Suspect]
     Active Substance: EPOPROSTENOL
     Dosage: 30 NG/KG, PER MIN
     Route: 042
  8. REVATIO [Suspect]
     Active Substance: SILDENAFIL CITRATE
     Indication: PRODUCT USED FOR UNKNOWN INDICATION
     Dosage: 20 MG, TID
     Route: 048

REACTIONS (36)
  - Hysterectomy [Recovered/Resolved]
  - Chest pain [Unknown]
  - Diarrhoea [Recovered/Resolved]
  - Pain in extremity [Unknown]
  - Swelling face [Unknown]
  - Skin laceration [Unknown]
  - Weight decreased [Unknown]
  - Leiomyoma [Recovered/Resolved]
  - Face injury [Unknown]
  - Product dose omission [Unknown]
  - Pneumonia [Unknown]
  - Nausea [Unknown]
  - Cardiac failure congestive [Unknown]
  - Palpitations [Unknown]
  - Vomiting [Unknown]
  - Head injury [Unknown]
  - Cardiac failure [Unknown]
  - Catheter site infection [Recovered/Resolved]
  - Catheter site discharge [Recovered/Resolved]
  - Syncope [Unknown]
  - Pain [Unknown]
  - Catheter site erythema [Recovered/Resolved]
  - Catheter site pain [Recovered/Resolved]
  - Pyrexia [Recovered/Resolved]
  - Menorrhagia [Unknown]
  - Rash [Recovered/Resolved]
  - Headache [Unknown]
  - Oophorectomy bilateral [Recovered/Resolved]
  - Fluid retention [Unknown]
  - Salpingo-oophorectomy bilateral [Recovered/Resolved]
  - Dyspnoea [Recovering/Resolving]
  - Catheter site haemorrhage [Recovered/Resolved]
  - Abdominal discomfort [Unknown]
  - Abdominal pain [Unknown]
  - Hypoaesthesia [Unknown]
  - Urinary tract infection [Unknown]

NARRATIVE: CASE EVENT DATE: 20170619
